FAERS Safety Report 12957911 (Version 5)
Quarter: 2017Q2

REPORT INFORMATION
  Report Type: Spontaneous
  Country: US (occurrence: US)
  Receive Date: 20161118
  Receipt Date: 20170502
  Transmission Date: 20170830
  Serious: Yes (Hospitalization)
  Sender: FDA-Public Use
  Company Number: US-BAUSCH-BL-2016-027868

PATIENT
  Age: 53 Year
  Sex: Female

DRUGS (3)
  1. XENAZINE [Suspect]
     Active Substance: TETRABENAZINE
     Indication: HUNTINGTON^S DISEASE
     Route: 048
     Dates: start: 201004
  2. XENAZINE [Suspect]
     Active Substance: TETRABENAZINE
     Dosage: 1 TABLET IN THE MORNING, HALF TABLET AT NOON AND 1 TABLET IN THE EVENING
     Route: 048
  3. XENAZINE [Suspect]
     Active Substance: TETRABENAZINE
     Indication: TARDIVE DYSKINESIA
     Route: 048

REACTIONS (7)
  - Anaemia [Unknown]
  - Treatment noncompliance [Unknown]
  - Abdominal pain upper [Unknown]
  - Nausea [Unknown]
  - Gastrooesophageal reflux disease [Unknown]
  - Depression [Unknown]
  - Headache [Unknown]

NARRATIVE: CASE EVENT DATE: 201611
